FAERS Safety Report 5675911-X (Version None)
Quarter: 2008Q1

REPORT INFORMATION
  Report Type: 
  Country: None (occurrence: None)
  Receive Date: 20080318
  Receipt Date: 20080303
  Transmission Date: 20080703
  Serious: Yes (Other)
  Sender: FDA-Public Use
  Company Number: 2008MB000016

PATIENT
  Age: 68 Year
  Sex: Female
  Weight: 62.5964 kg

DRUGS (3)
  1. KEFLEX [Suspect]
     Indication: KIDNEY INFECTION
     Dosage: 500 MG; Q6H
     Dates: start: 20030619, end: 20030622
  2. ACCUPRIL [Concomitant]
  3. LEVOTHYROXINE SODIUM [Concomitant]

REACTIONS (2)
  - ERYTHEMA [None]
  - VASCULITIS [None]
